FAERS Safety Report 10444990 (Version 2)
Quarter: 2014Q4

REPORT INFORMATION
  Report Type: Spontaneous
  Country: US (occurrence: US)
  Receive Date: 20140910
  Receipt Date: 20141009
  Transmission Date: 20150528
  Serious: No
  Sender: FDA-Public Use
  Company Number: US-PFIZER INC-2014250598

PATIENT
  Age: 38 Year
  Sex: Male

DRUGS (1)
  1. CALAN SR [Suspect]
     Active Substance: VERAPAMIL HYDROCHLORIDE
     Indication: VENTRICULAR TACHYCARDIA
     Dosage: 180 MG,(ONCE OR TWICE A DAY )
     Route: 048
     Dates: start: 1989, end: 2013

REACTIONS (4)
  - Fatigue [Unknown]
  - Malaise [Unknown]
  - Product use issue [Unknown]
  - Asthenia [Unknown]
